FAERS Safety Report 11620276 (Version 1)
Quarter: 2015Q4

REPORT INFORMATION
  Report Type: Spontaneous
  Country: US (occurrence: US)
  Receive Date: 20151012
  Receipt Date: 20151012
  Transmission Date: 20160304
  Serious: No
  Sender: FDA-Public Use
  Company Number: US-BAYER-2015-441801

PATIENT
  Age: 57 Year
  Sex: Female
  Weight: 90.7 kg

DRUGS (2)
  1. ALEVE [Suspect]
     Active Substance: NAPROXEN SODIUM
     Dosage: UNK
  2. BAYER EXTRA STRENGTH PM [Suspect]
     Active Substance: ASPIRIN\DIPHENHYDRAMINE
     Indication: SLEEP DISORDER THERAPY
     Dosage: 2 DF, PRN
     Route: 048

REACTIONS (3)
  - Therapeutic response unexpected [None]
  - Product use issue [None]
  - Feeling abnormal [None]
